FAERS Safety Report 24096588 (Version 1)
Quarter: 2024Q3

REPORT INFORMATION
  Report Type: Spontaneous
  Country: US (occurrence: None)
  Receive Date: 20240716
  Receipt Date: 20240716
  Transmission Date: 20241017
  Serious: Yes (Other)
  Sender: Public
  Company Number: None

PATIENT
  Sex: Male

DRUGS (1)
  1. COSENTYX [Suspect]
     Active Substance: SECUKINUMAB
     Indication: Psoriasis
     Dosage: FREQ: RX1: INJECT 300MG UNDER THE SKIN (SUBCUTANEOUS INJECTION) WEEKLY AT WEEKS 0, 1, 2, AND 3
     Route: 058
     Dates: start: 20240628

REACTIONS (4)
  - Tonsillitis [None]
  - Arthritis [None]
  - Spinal cord injury [None]
  - Loss of personal independence in daily activities [None]
